FAERS Safety Report 7351500 (Version 2)
Quarter: 2013Q3

REPORT INFORMATION
  Report Type: Spontaneous
  Country: None (occurrence: None)
  Receive Date: 20100322
  Receipt Date: 20130709
  Transmission Date: 20140515
  Serious: Yes (Other)
  Sender: FDA-Public Use
  Company Number: AUR-APL-2010-00663

PATIENT
  Age: 68 Year
  Sex: Male

DRUGS (2)
  1. RIBAVIRIN [Suspect]
     Indication: CHRONIC HEPATITIS C
     Dosage: 800 MG (ONCE A DAY). ORAL
     Route: 048
  2. PEGINTERFERON ALFA-2A [Suspect]
     Indication: CHRONIC HEPATITIS C
     Dosage: 100MCG-WEEKLY-SUBCUTANE
     Route: 058

REACTIONS (5)
  - Cardiac failure congestive [None]
  - Interstitial lung disease [None]
  - Restrictive pulmonary disease [None]
  - Dyspnoea exertional [None]
  - Anaemia [None]
